FAERS Safety Report 7956152-X (Version None)
Quarter: 2011Q4

REPORT INFORMATION
  Report Type: 
  Country: None (occurrence: None)
  Receive Date: 20111205
  Receipt Date: 20111128
  Transmission Date: 20120403
  Serious: Yes (Hospitalization, Disabling, Other)
  Sender: FDA-Public Use
  Company Number: US-ELI_LILLY_AND_COMPANY-US201106004332

PATIENT
  Sex: Male
  Weight: 85.261 kg

DRUGS (14)
  1. AVANDIA [Concomitant]
     Indication: DIABETES MELLITUS
     Dosage: UNK
     Dates: start: 20070101, end: 20100101
  2. HYDROCHLOROTHIAZIDE [Concomitant]
     Indication: HYPERTENSION
     Dosage: UNK
     Dates: start: 20060101, end: 20080101
  3. DIOVAN [Concomitant]
     Indication: HYPERTENSION
     Dosage: 160 MG, QD
     Dates: start: 20070101, end: 20110101
  4. DILTIAZEM HCL [Concomitant]
     Dosage: 180 MG, QD
  5. SIMVASTATIN [Concomitant]
     Indication: HYPERCHOLESTEROLAEMIA
     Dosage: 40 MG, EACH EVENING
     Dates: start: 20060101, end: 20110501
  6. BYETTA [Suspect]
     Dosage: 10 UG, BID
     Dates: end: 20080801
  7. LISINOPRIL [Concomitant]
     Indication: HYPERTENSION
     Dosage: 20 MG, QD
     Dates: start: 20050101, end: 20080101
  8. OXAPROZIN [Concomitant]
     Dosage: 1200 MG, QD
  9. METFORMIN HCL [Concomitant]
     Indication: DIABETES MELLITUS
     Dosage: UNK
     Dates: start: 20060301, end: 20060401
  10. ZOCOR [Concomitant]
     Indication: HYPERCHOLESTEROLAEMIA
     Dosage: 40 MG, EACH EVENING
     Dates: start: 20050101
  11. CINNAMON [Concomitant]
     Dosage: 1000 MG, EACH EVENING
  12. BYETTA [Suspect]
     Dosage: 5 UG, UNK
     Dates: start: 20051001
  13. TYLENOL (CAPLET) [Concomitant]
     Indication: PAIN
  14. AVANDAMET [Concomitant]
     Dosage: 4000 MG, BID

REACTIONS (3)
  - PANCREATITIS [None]
  - WEIGHT DECREASED [None]
  - RENAL FAILURE ACUTE [None]
